FAERS Safety Report 9596734 (Version 3)
Quarter: 2013Q4

REPORT INFORMATION
  Report Type: Spontaneous
  Country: JP (occurrence: JP)
  Receive Date: 20131004
  Receipt Date: 20131105
  Transmission Date: 20140711
  Serious: No
  Sender: FDA-Public Use
  Company Number: JP-GLAXOSMITHKLINE-B0927327A

PATIENT
  Age: 71 Year
  Sex: Female

DRUGS (3)
  1. REQUIP [Suspect]
     Indication: PARKINSON^S DISEASE
     Dosage: 4MG THREE TIMES PER DAY
     Route: 048
  2. NEODOPASTON [Concomitant]
     Route: 048
  3. CHINESE MEDICINE [Concomitant]
     Route: 048

REACTIONS (2)
  - Somnolence [Unknown]
  - Insomnia [Unknown]
